FAERS Safety Report 4866044-0 (Version None)
Quarter: 2005Q4

REPORT INFORMATION
  Report Type: 
  Country: None (occurrence: None)
  Receive Date: 20051221
  Receipt Date: 20051205
  Transmission Date: 20060501
  Serious: Yes (Hospitalization, Other)
  Sender: FDA-Public Use
  Company Number: GBR-2005-0002013

PATIENT
  Age: 4 Year
  Sex: Female
  Weight: 17 kg

DRUGS (1)
  1. OXYNORM CONCENTRATE 10 MG/ML (OXYCODONE HYDROCHLORIDE) ORAL SOLUTION [Suspect]
     Indication: PROCEDURAL PAIN
     Dosage: 17 MG, SINGLE, ORAL
     Route: 048

REACTIONS (4)
  - ACCIDENTAL OVERDOSE [None]
  - INCORRECT DOSE ADMINISTERED [None]
  - MEDICATION ERROR [None]
  - OXYGEN SATURATION DECREASED [None]
